FAERS Safety Report 10099841 (Version 1)
Quarter: 2014Q2

REPORT INFORMATION
  Report Type: Spontaneous
  Country: US (occurrence: None)
  Receive Date: 20140422
  Receipt Date: 20140422
  Transmission Date: 20141212
  Serious: Yes (Other)
  Sender: FDA-Public Use
  Company Number: None

PATIENT
  Age: 29 Year
  Sex: Male
  Weight: 77.11 kg

DRUGS (1)
  1. LEVOFLOXACIN 500 MG [Suspect]
     Indication: PROSTATE INFECTION
     Dosage: 21 PILLS?ONCE DAILY ?TAKEN BY MOUTH
     Route: 048
     Dates: start: 20140401, end: 20140407

REACTIONS (2)
  - Arthralgia [None]
  - Tendon pain [None]
